FAERS Safety Report 7766916-3 (Version None)
Quarter: 2011Q3

REPORT INFORMATION
  Report Type: 
  Country: None (occurrence: None)
  Receive Date: 20110922
  Receipt Date: 20110919
  Transmission Date: 20111222
  Serious: Yes (Other)
  Sender: FDA-Public Use
  Company Number: US-PFIZER INC-2011221637

PATIENT
  Sex: Male
  Weight: 87.075 kg

DRUGS (2)
  1. AMLODIPINE [Concomitant]
     Dosage: 200 MG, 2X/DAY
  2. CELEBREX [Suspect]
     Indication: GASTROINTESTINAL PAIN
     Dosage: UNK
     Route: 048

REACTIONS (2)
  - CEREBROVASCULAR ACCIDENT [None]
  - MYOCARDIAL INFARCTION [None]
